FAERS Safety Report 7417966-8 (Version None)
Quarter: 2011Q2

REPORT INFORMATION
  Report Type: 
  Country: None (occurrence: None)
  Receive Date: 20110415
  Receipt Date: 20101105
  Transmission Date: 20111010
  Serious: Yes (Hospitalization)
  Sender: FDA-Public Use
  Company Number: US-ROCHE-677805

PATIENT
  Sex: Female
  Weight: 90 kg

DRUGS (20)
  1. CARBOPLATIN [Suspect]
     Dosage: DOSE REDUCED.
     Route: 042
     Dates: start: 20100107
  2. ATIVAN [Concomitant]
     Dates: start: 20091022
  3. DOCETAXEL [Suspect]
     Route: 042
     Dates: start: 20100114
  4. COMPAZINE [Concomitant]
     Dates: start: 20091022
  5. DEXAMETASONE [Concomitant]
     Dates: start: 20091112
  6. DOCETAXEL [Suspect]
     Dosage: DOSE REDUCED.
     Route: 042
     Dates: start: 20100107
  7. TRASTUZUMAB [Suspect]
     Dosage: DOSE LEVEL: 6 MG/KG. DOSAGE FORM: VIALS. LAST DOSE PRIOR TO SAE: 03 DECEMBER 2009.
     Route: 042
     Dates: start: 20091022, end: 20091223
  8. CARBOPLATIN [Suspect]
     Dosage: DOSE LEVEL: 5 AUC, DOSE REDUCED.
     Route: 042
     Dates: end: 20091223
  9. ZOFRAN [Concomitant]
     Dates: start: 20091112
  10. SYNTHROID [Concomitant]
     Dates: start: 20090916
  11. DOCETAXEL [Suspect]
     Dosage: FORM: VIALS. DOSE LEVEL: 75 MG/ M2. LAST DOSE PRIOR TO SAE: 03 DECEMBER 2009.
     Route: 042
     Dates: start: 20091022
  12. ZOLOFT [Concomitant]
     Dates: start: 20090916
  13. DOCETAXEL [Suspect]
     Dosage: DOSE LEVEL: 60 MG/ M2. DOSE REDUCED.
     Route: 042
     Dates: end: 20091223
  14. BENICAR [Concomitant]
     Dates: start: 20090916
  15. CARBOPLATIN [Suspect]
     Dosage: DOSE LEVEL: 6 AUC, FORM VIALS.
     Route: 042
     Dates: start: 20091022
  16. NAPROSYN [Concomitant]
     Dates: start: 20090916
  17. TRASTUZUMAB [Suspect]
     Route: 042
     Dates: start: 20100114
  18. CARBOPLATIN [Suspect]
     Route: 042
     Dates: start: 20100114
  19. FISH OIL [Concomitant]
     Dates: start: 20090916
  20. M.V.I. [Concomitant]
     Dates: start: 20090916

REACTIONS (2)
  - RENAL FAILURE [None]
  - HAEMATURIA [None]
